FAERS Safety Report 8155703-2 (Version None)
Quarter: 2012Q1

REPORT INFORMATION
  Report Type: 
  Country: None (occurrence: None)
  Receive Date: 20120215
  Receipt Date: 20120209
  Transmission Date: 20120608
  Serious: Yes (Hospitalization, Other)
  Sender: FDA-Public Use
  Company Number: 2012-0203

PATIENT
  Age: 45 Year
  Sex: Female
  Weight: 45 kg

DRUGS (2)
  1. DYSPORT [Suspect]
     Indication: MUSCLE SPASTICITY
     Dosage: 1500 UNITS (1500 UNITS, SINGLE CYCLE, INTRAMUSCULAR
     Route: 030
     Dates: start: 20111210, end: 20111210
  2. ABOBOTULINUMTOXIN A [Suspect]

REACTIONS (3)
  - EYELID PTOSIS [None]
  - RESPIRATORY DISTRESS [None]
  - MUSCULAR WEAKNESS [None]
